FAERS Safety Report 9580708 (Version 1)
Quarter: 2013Q3

REPORT INFORMATION
  Report Type: Spontaneous
  Country: US (occurrence: None)
  Receive Date: 20130916
  Receipt Date: 20130916
  Transmission Date: 20140515
  Serious: Yes (Other)
  Sender: FDA-Public Use
  Company Number: JPI-P-027163

PATIENT
  Age: 29 Year
  Sex: Female
  Weight: 77.11 kg

DRUGS (2)
  1. XYREM [Suspect]
     Indication: NARCOLEPSY
     Route: 048
     Dates: start: 20121025, end: 2012
  2. ADDERALL [Concomitant]

REACTIONS (3)
  - Paranoia [None]
  - Fear [None]
  - Abnormal behaviour [None]
